FAERS Safety Report 6920824-6 (Version None)
Quarter: 2010Q3

REPORT INFORMATION
  Report Type: 
  Country: None (occurrence: None)
  Receive Date: 20100812
  Receipt Date: 20100730
  Transmission Date: 20110219
  Serious: Yes (Other)
  Sender: FDA-Public Use
  Company Number: PHHY2010MX50647

PATIENT
  Sex: Female

DRUGS (2)
  1. ZOLEDRONIC [Suspect]
     Dosage: 5 MG/100 ML PER YEAR
     Dates: start: 20100201
  2. OZONE [Concomitant]
     Dosage: UNK

REACTIONS (3)
  - DIZZINESS [None]
  - GAIT DISTURBANCE [None]
  - OEDEMA PERIPHERAL [None]
